FAERS Safety Report 9455652 (Version 1)
Quarter: 2013Q3

REPORT INFORMATION
  Report Type: Spontaneous
  Country: US (occurrence: US)
  Receive Date: 20130813
  Receipt Date: 20130813
  Transmission Date: 20140515
  Serious: No
  Sender: FDA-Public Use
  Company Number: US-BAYER-2013-097277

PATIENT
  Sex: Female

DRUGS (1)
  1. NATAZIA [Suspect]
     Dosage: UNK

REACTIONS (1)
  - Medication error [None]
